FAERS Safety Report 7792506-2 (Version None)
Quarter: 2011Q4

REPORT INFORMATION
  Report Type: 
  Country: None (occurrence: None)
  Receive Date: 20111003
  Receipt Date: 20110930
  Transmission Date: 20120403
  Serious: Yes (Death, Other)
  Sender: FDA-Public Use
  Company Number: CH-JNJFOC-20110912073

PATIENT
  Age: 25 Year
  Sex: Male

DRUGS (6)
  1. HALDOL [Suspect]
     Indication: PSYCHOTIC DISORDER
     Route: 048
     Dates: start: 20110422, end: 20110422
  2. HALDOL [Suspect]
     Route: 048
     Dates: start: 20090101
  3. HALDOL [Suspect]
     Route: 048
     Dates: start: 20110420, end: 20110420
  4. HALDOL [Suspect]
     Route: 048
     Dates: start: 20110510, end: 20110510
  5. LORAZEPAM [Concomitant]
     Route: 048
     Dates: start: 20110420, end: 20110427
  6. LORAZEPAM [Concomitant]
     Route: 048
     Dates: start: 20110428, end: 20110510

REACTIONS (2)
  - AGGRESSION [None]
  - COMPLETED SUICIDE [None]
